FAERS Safety Report 5047682-1 (Version None)
Quarter: 2006Q3

REPORT INFORMATION
  Report Type: 
  Country: None (occurrence: None)
  Receive Date: 20060706
  Receipt Date: 20060706
  Transmission Date: 20061208
  Serious: Yes (Hospitalization)
  Sender: FDA-Public Use
  Company Number: None

PATIENT
  Age: 69 Year
  Sex: Male
  Weight: 61.8 kg

DRUGS (1)
  1. WARFARIN SODIUM [Suspect]
     Indication: ATRIAL FIBRILLATION
     Dosage: SEE IMAGE
     Route: 048
     Dates: start: 20060208, end: 20060628

REACTIONS (11)
  - ABASIA [None]
  - BLOOD CREATINE PHOSPHOKINASE MB INCREASED [None]
  - CARDIAC ENZYMES INCREASED [None]
  - CHRONIC OBSTRUCTIVE PULMONARY DISEASE [None]
  - DRUG TOXICITY [None]
  - DYSPNOEA [None]
  - EXCORIATION [None]
  - INTERNATIONAL NORMALISED RATIO ABNORMAL [None]
  - INTERNATIONAL NORMALISED RATIO INCREASED [None]
  - OCCULT BLOOD POSITIVE [None]
  - TROPONIN INCREASED [None]
